FAERS Safety Report 12992051 (Version 1)
Quarter: 2016Q4

REPORT INFORMATION
  Report Type: Spontaneous
  Country: DE (occurrence: DE)
  Receive Date: 20161201
  Receipt Date: 20161201
  Transmission Date: 20170207
  Serious: Yes (Hospitalization)
  Sender: FDA-Public Use
  Company Number: DE-TEVA-714535GER

PATIENT
  Age: 36 Year
  Sex: Female

DRUGS (13)
  1. AMISULPRID [Suspect]
     Active Substance: AMISULPRIDE
     Indication: MENTAL DISORDER
     Route: 048
     Dates: start: 20151120
  2. VENLAFAXINE [Suspect]
     Active Substance: VENLAFAXINE HYDROCHLORIDE
     Indication: MENTAL DISORDER
     Route: 048
     Dates: start: 20160115, end: 20160125
  3. VENLAFAXINE [Suspect]
     Active Substance: VENLAFAXINE HYDROCHLORIDE
     Indication: MENTAL DISORDER
     Route: 048
     Dates: start: 20160321, end: 20160330
  4. VENLAFAXINE [Suspect]
     Active Substance: VENLAFAXINE HYDROCHLORIDE
     Indication: CONDUCT DISORDER
     Route: 048
     Dates: start: 20160312, end: 20160320
  5. DOXEPIN [Suspect]
     Active Substance: DOXEPIN
     Indication: CONDUCT DISORDER
     Route: 048
     Dates: start: 20151204, end: 20160329
  6. VENLAFAXINE [Suspect]
     Active Substance: VENLAFAXINE HYDROCHLORIDE
     Indication: CONDUCT DISORDER
     Route: 048
     Dates: start: 20160126, end: 20160311
  7. DOXEPIN [Suspect]
     Active Substance: DOXEPIN
  8. AMISULPRID [Suspect]
     Active Substance: AMISULPRIDE
     Indication: MENTAL DISORDER
     Route: 048
     Dates: start: 20151121
  9. AMISULPRID [Suspect]
     Active Substance: AMISULPRIDE
     Indication: CONDUCT DISORDER
     Route: 048
     Dates: start: 20151122, end: 20151217
  10. AMISULPRID [Suspect]
     Active Substance: AMISULPRIDE
     Indication: CONDUCT DISORDER
     Route: 048
     Dates: start: 20151218, end: 20160121
  11. VENLAFAXINE [Suspect]
     Active Substance: VENLAFAXINE HYDROCHLORIDE
     Indication: MENTAL DISORDER
     Route: 048
     Dates: start: 20160108, end: 20160114
  12. AMISULPRID [Suspect]
     Active Substance: AMISULPRIDE
     Indication: MENTAL DISORDER
     Route: 048
     Dates: start: 20160122, end: 20160309
  13. AMISULPRID [Suspect]
     Active Substance: AMISULPRIDE
     Route: 048
     Dates: start: 20160310, end: 20160318

REACTIONS (1)
  - Liver function test abnormal [Recovering/Resolving]

NARRATIVE: CASE EVENT DATE: 20160210
